FAERS Safety Report 19656304 (Version 1)
Quarter: 2021Q3

REPORT INFORMATION
  Report Type: Spontaneous
  Country: US (occurrence: US)
  Receive Date: 20210802
  Receipt Date: 20210802
  Transmission Date: 20211014
  Serious: No
  Sender: FDA-Public Use
  Company Number: None

PATIENT

DRUGS (2)
  1. HYPERTONIC SALINE [Suspect]
     Active Substance: SODIUM CHLORIDE
  2. HEPARIN [Suspect]
     Active Substance: HEPARIN SODIUM
     Dosage: ?          OTHER STRENGTH:20000 UNITS IN DSW;?

REACTIONS (3)
  - Wrong product stored [None]
  - Product packaging confusion [None]
  - Intercepted product dispensing error [None]
